FAERS Safety Report 12837821 (Version 2)
Quarter: 2016Q4

REPORT INFORMATION
  Report Type: Spontaneous
  Country: JP (occurrence: JP)
  Receive Date: 20161012
  Receipt Date: 20161016
  Transmission Date: 20170207
  Serious: Yes (Hospitalization, Other)
  Sender: FDA-Public Use
  Company Number: JP-UCBSA-2016038553

PATIENT
  Age: 39 Year
  Sex: Female

DRUGS (1)
  1. E KEPPRA [Suspect]
     Active Substance: LEVETIRACETAM
     Indication: TEMPORAL LOBE EPILEPSY
     Dosage: 2000 MG DAILY
     Route: 048

REACTIONS (3)
  - Temporal lobe epilepsy [Recovered/Resolved]
  - Drug effect incomplete [Unknown]
  - Treatment noncompliance [Unknown]

NARRATIVE: CASE EVENT DATE: 2016
